FAERS Safety Report 23991945 (Version 2)
Quarter: 2024Q4

REPORT INFORMATION
  Report Type: Report from Study
  Country: US (occurrence: US)
  Receive Date: 20240620
  Receipt Date: 20241104
  Transmission Date: 20250114
  Serious: Yes (Hospitalization, Other)
  Sender: ABBVIE
  Company Number: US-ABBVIE-5801652

PATIENT
  Age: 59 Year
  Sex: Female

DRUGS (2)
  1. SKYRIZI [Suspect]
     Active Substance: RISANKIZUMAB-RZAA
     Indication: Crohn^s disease
     Route: 058
     Dates: start: 20240702
  2. RINVOQ [Suspect]
     Active Substance: UPADACITINIB
     Indication: Colitis ulcerative
     Route: 048
     Dates: start: 20230518

REACTIONS (14)
  - Pulmonary thrombosis [Recovering/Resolving]
  - Haemorrhage [Unknown]
  - Haematochezia [Recovering/Resolving]
  - Paraesthesia [Recovering/Resolving]
  - Large intestinal ulcer [Recovering/Resolving]
  - Haemoglobin decreased [Unknown]
  - Fatigue [Recovering/Resolving]
  - Crohn^s disease [Unknown]
  - Feeling abnormal [Not Recovered/Not Resolved]
  - Stool analysis abnormal [Unknown]
  - Large intestine infection [Unknown]
  - Product dispensing error [Unknown]
  - Frequent bowel movements [Recovering/Resolving]
  - Fatigue [Unknown]

NARRATIVE: CASE EVENT DATE: 20240101
